FAERS Safety Report 8247458-8 (Version None)
Quarter: 2012Q1

REPORT INFORMATION
  Report Type: 
  Country: None (occurrence: None)
  Receive Date: 20120330
  Receipt Date: 20120323
  Transmission Date: 20120608
  Serious: Yes (Life-Threatening, Hospitalization)
  Sender: FDA-Public Use
  Company Number: GB-PFIZER INC-2011203107

PATIENT
  Age: 64 Year
  Sex: Male
  Weight: 170 kg

DRUGS (3)
  1. OMEPRAZOLE [Concomitant]
     Indication: DYSPHAGIA
     Dosage: 20 MG, 1X/DAY
     Dates: start: 20090224
  2. IBUPROFEN [Suspect]
     Indication: SPINAL OSTEOARTHRITIS
     Dosage: 400 MG, 3X/DAY
     Route: 048
     Dates: start: 20100823, end: 20111114
  3. ACETAMINOPHEN AND CODEINE PHOSPHATE [Concomitant]
     Indication: SPINAL OSTEOARTHRITIS
     Dosage: 16 MG, 4X/DAY
     Dates: start: 20080811

REACTIONS (2)
  - SMALL INTESTINAL STENOSIS [None]
  - SMALL INTESTINE ULCER [None]
